FAERS Safety Report 24860726 (Version 2)
Quarter: 2025Q1

REPORT INFORMATION
  Report Type: Report from Study
  Country: US (occurrence: US)
  Receive Date: 20250120
  Receipt Date: 20250201
  Transmission Date: 20250408
  Serious: No
  Sender: ABBVIE
  Company Number: US-ABBVIE-6091163

PATIENT
  Age: 76 Year
  Sex: Male
  Weight: 90.718 kg

DRUGS (14)
  1. CREON [Suspect]
     Active Substance: PANCRELIPASE AMYLASE\PANCRELIPASE LIPASE\PANCRELIPASE PROTEASE
     Indication: Pancreatic failure
     Dosage: 1 PER MEAL AND 1 PER SNACK?FORM STRENGTH: 36000 UNIT
     Route: 048
     Dates: start: 202408
  2. CREON [Suspect]
     Active Substance: PANCRELIPASE AMYLASE\PANCRELIPASE LIPASE\PANCRELIPASE PROTEASE
     Indication: Pancreatic failure
     Route: 048
     Dates: start: 20250108
  3. QUERCETIN [Concomitant]
     Active Substance: QUERCETIN
     Indication: Routine health maintenance
  4. VITAMIN D3 [Concomitant]
     Active Substance: CHOLECALCIFEROL
     Indication: Routine health maintenance
  5. LEVOCARNITINE [Concomitant]
     Active Substance: LEVOCARNITINE
     Indication: Routine health maintenance
  6. ACETYLCYSTEINE [Concomitant]
     Active Substance: ACETYLCYSTEINE
     Indication: Routine health maintenance
  7. DIETARY SUPPLEMENT\HERBALS\MILK THISTLE [Concomitant]
     Active Substance: MILK THISTLE
     Indication: Routine health maintenance
  8. HERBALS\TURMERIC [Concomitant]
     Active Substance: HERBALS\TURMERIC
     Indication: Routine health maintenance
  9. IODINE (IODINE) [Concomitant]
     Active Substance: IODINE
     Indication: Routine health maintenance
  10. APIGENIN [Concomitant]
     Active Substance: APIGENIN
     Indication: Routine health maintenance
  11. CALCIUM CITRATE [Concomitant]
     Active Substance: CALCIUM CITRATE
     Indication: Bone disorder
  12. VITAMIN C [Concomitant]
     Active Substance: ASCORBIC ACID
     Indication: Routine health maintenance
  13. ZINC [Concomitant]
     Active Substance: ZINC
     Indication: Routine health maintenance
  14. IP-6 [Concomitant]
     Indication: Routine health maintenance

REACTIONS (8)
  - Defaecation urgency [Recovered/Resolved]
  - Weight decreased [Unknown]
  - Diarrhoea [Recovered/Resolved]
  - Flatulence [Recovering/Resolving]
  - Diarrhoea [Unknown]
  - Asthenia [Not Recovered/Not Resolved]
  - Hot flush [Not Recovered/Not Resolved]
  - Diarrhoea [Recovered/Resolved]

NARRATIVE: CASE EVENT DATE: 20240901
